FAERS Safety Report 6743965-5 (Version None)
Quarter: 2010Q2

REPORT INFORMATION
  Report Type: 
  Country: None (occurrence: None)
  Receive Date: 20100527
  Receipt Date: 20100518
  Transmission Date: 20101027
  Serious: Yes (Hospitalization, Other)
  Sender: FDA-Public Use
  Company Number: US-CELGENEUS-163-21880-09071280

PATIENT
  Sex: Female
  Weight: 64.014 kg

DRUGS (16)
  1. REVLIMID [Suspect]
     Indication: MULTIPLE MYELOMA
     Route: 048
     Dates: start: 20090720
  2. REVLIMID [Suspect]
     Route: 048
     Dates: start: 20080919
  3. REVLIMID [Suspect]
     Route: 048
     Dates: start: 20081201
  4. REVLIMID [Suspect]
     Dosage: 15MG-10MG
     Route: 048
     Dates: start: 20090301, end: 20090101
  5. REVLIMID [Suspect]
     Route: 048
     Dates: start: 20091101
  6. OMEPRAZOLE [Concomitant]
     Indication: DRUG USE FOR UNKNOWN INDICATION
     Route: 065
  7. TEMAZEPAM [Concomitant]
     Indication: DRUG USE FOR UNKNOWN INDICATION
     Route: 065
  8. ALBUTEROL [Concomitant]
     Indication: ASTHMA
     Route: 065
  9. TRAZODONE HCL [Concomitant]
     Indication: DRUG USE FOR UNKNOWN INDICATION
     Route: 065
  10. ACYCLOVIR [Concomitant]
     Indication: HERPES ZOSTER
     Route: 065
  11. MORPHINE [Concomitant]
     Indication: BONE PAIN
     Dosage: 5MG/ML
     Route: 050
  12. MORPHINE [Concomitant]
  13. OXYCODONE [Concomitant]
     Indication: BONE PAIN
     Route: 065
  14. OXYCODONE [Concomitant]
  15. ATIVAN [Concomitant]
     Indication: DRUG USE FOR UNKNOWN INDICATION
     Route: 065
  16. ZYRTEC [Concomitant]
     Indication: DRUG USE FOR UNKNOWN INDICATION
     Route: 048

REACTIONS (5)
  - ABDOMINAL HERNIA [None]
  - BONE PAIN [None]
  - MUSCLE SPASMS [None]
  - NEUROPATHY PERIPHERAL [None]
  - WOUND DEHISCENCE [None]
